FAERS Safety Report 4286230-0 (Version None)
Quarter: 2004Q1

REPORT INFORMATION
  Report Type: 
  Country: None (occurrence: None)
  Receive Date: 20040202
  Receipt Date: 20040122
  Transmission Date: 20041129
  Serious: Yes (Hospitalization)
  Sender: FDA-Public Use
  Company Number: 200321894GDDC

PATIENT
  Age: 45 Year
  Sex: Female

DRUGS (8)
  1. LEFLUNOMIDE [Suspect]
     Indication: RHEUMATOID ARTHRITIS
     Dosage: 20 MG QD PO
     Route: 048
     Dates: start: 20000201, end: 20030505
  2. LEFLUNOMIDE [Suspect]
     Indication: RHEUMATOID ARTHRITIS
     Dates: start: 20031001
  3. ENTERACEPT (ENBREL) [Suspect]
     Indication: RHEUMATOID ARTHRITIS
     Dosage: 25 MG 2XW SC
     Route: 058
     Dates: start: 20030312, end: 20030501
  4. ETANERACEPT (ENBREL) [Suspect]
     Indication: RHEUMATOID ARTHRITIS
     Dosage: 25 MG BID
     Dates: end: 20031001
  5. PREDNISONE [Concomitant]
  6. LISINOPRIL [Concomitant]
  7. PROZAC [Concomitant]
  8. CALCIUM CARBONATE, ETIDRONATE DISODIUM (DIDROCAL) [Concomitant]

REACTIONS (7)
  - DRUG INEFFECTIVE [None]
  - HEPATITIS [None]
  - INSOMNIA [None]
  - IRRITABILITY [None]
  - SYNOVITIS [None]
  - WEIGHT INCREASED [None]
  - WHITE BLOOD CELL COUNT INCREASED [None]
